FAERS Safety Report 5753054-4 (Version None)
Quarter: 2008Q2

REPORT INFORMATION
  Report Type: 
  Country: None (occurrence: None)
  Receive Date: 20080527
  Receipt Date: 20080509
  Transmission Date: 20081010
  Serious: Yes (Death, Other)
  Sender: FDA-Public Use
  Company Number: 2008US000652

PATIENT
  Age: 82 Year
  Sex: Female

DRUGS (17)
  1. AMBISOME [Suspect]
     Indication: FUNGAL INFECTION
     Dosage: 150 MG, UID/QD, IV NOS
     Route: 042
     Dates: start: 20080122, end: 20080126
  2. VANCOMYCIN HYDROCHLORIDE [Suspect]
     Indication: STAPHYLOCOCCAL INFECTION
     Dosage: 1 G, UID/QD, ORAL
     Route: 048
     Dates: start: 20080115, end: 20080122
  3. NEUTROGIN (LENOGRASTIM) [Concomitant]
  4. MAGNESIUM OXIDE HEAVY (MAGNESIUM OXIDE HEAVY) [Concomitant]
  5. ASPIRIN [Concomitant]
  6. ISOSORBIDE DINITRATE [Concomitant]
  7. METHYCOBAL (MECOBALAMIN) [Concomitant]
  8. PROTECADIN (LAFUTIDINE) [Concomitant]
  9. PRAVASTATIN [Concomitant]
  10. LENDORM [Concomitant]
  11. OPALMON (LIMAPROST) [Concomitant]
  12. RED BLOOD CELLS [Concomitant]
  13. PLATELETS [Concomitant]
  14. MAXIPIME [Concomitant]
  15. FOSMICIN S (FOSFOMYCIN SODIUM) [Concomitant]
  16. ALBUMIN (HUMAN) [Concomitant]
  17. FUNGUARD (MICAFUNGIN SODIUM) [Concomitant]

REACTIONS (3)
  - PLEURAL EFFUSION [None]
  - PNEUMONIA [None]
  - STEVENS-JOHNSON SYNDROME [None]
